FAERS Safety Report 23933679 (Version 1)
Quarter: 2024Q2

REPORT INFORMATION
  Report Type: Spontaneous
  Country: US (occurrence: None)
  Receive Date: 20240603
  Receipt Date: 20240603
  Transmission Date: 20240716
  Serious: Yes (Other)
  Sender: FDA-Public Use
  Company Number: None

PATIENT
  Age: 69 Year
  Sex: Male
  Weight: 90.72 kg

DRUGS (2)
  1. QUETIAPINE [Suspect]
     Active Substance: QUETIAPINE
     Indication: Diabetic retinopathy
     Dosage: FREQUENCY : DAILY;?
     Route: 048
     Dates: start: 20231201, end: 20240115
  2. QUETIAPINE [Suspect]
     Active Substance: QUETIAPINE
     Indication: Macular degeneration

REACTIONS (2)
  - Intraocular pressure increased [None]
  - Therapy cessation [None]

NARRATIVE: CASE EVENT DATE: 20231201
